FAERS Safety Report 8154166-0 (Version None)
Quarter: 2012Q1

REPORT INFORMATION
  Report Type: 
  Country: None (occurrence: None)
  Receive Date: 20120221
  Receipt Date: 20120214
  Transmission Date: 20120608
  Serious: Yes (Death)
  Sender: FDA-Public Use
  Company Number: NO-PURDUE-GBR-2012-0009753

PATIENT
  Age: 74 Year
  Sex: Female

DRUGS (5)
  1. OXYCONTIN [Suspect]
     Indication: PAIN
     Dosage: 60 MG, BID
     Route: 048
     Dates: start: 20111101, end: 20111101
  2. OXYCODONE HCL [Suspect]
     Indication: PAIN
     Dosage: UNK
     Route: 048
     Dates: start: 20111101, end: 20111101
  3. BUPRENORPHINE [Suspect]
     Indication: PAIN
     Dosage: 50 MCG, UNK
     Route: 062
  4. KETORAX [Suspect]
     Indication: PAIN
     Dosage: UNK
     Route: 051
     Dates: start: 20111101, end: 20111101
  5. TRAMADOL HCL [Suspect]
     Indication: PAIN
     Dosage: 50 MG, TID
     Dates: end: 20111101

REACTIONS (5)
  - SEPSIS [None]
  - MULTI-ORGAN FAILURE [None]
  - SEPTIC SHOCK [None]
  - OVERDOSE [None]
  - PNEUMONIA ASPIRATION [None]
